FAERS Safety Report 4309576-6 (Version None)
Quarter: 2004Q1

REPORT INFORMATION
  Report Type: 
  Country: None (occurrence: None)
  Receive Date: 20040302
  Receipt Date: 20040218
  Transmission Date: 20041129
  Serious: Yes (Other)
  Sender: FDA-Public Use
  Company Number: 2004200953US

PATIENT

DRUGS (2)
  1. CAMPTOSAR [Suspect]
     Indication: GASTRIC CANCER
     Dosage: 75 MG/M2, 2 CYCLES
  2. CISPLATIN [Suspect]
     Indication: GASTRIC CANCER
     Dosage: 25 MG/M2, 2 CYCLES

REACTIONS (1)
  - PULMONARY OEDEMA [None]
